FAERS Safety Report 7548496-0 (Version None)
Quarter: 2011Q2

REPORT INFORMATION
  Report Type: 
  Country: None (occurrence: None)
  Receive Date: 20110615
  Receipt Date: 20101019
  Transmission Date: 20111010
  Serious: Yes (Hospitalization, Other)
  Sender: FDA-Public Use
  Company Number: US-BAYER-201033929NA

PATIENT
  Age: 20 Year
  Sex: Female
  Weight: 136 kg

DRUGS (9)
  1. LEVOTHYROXINE SODIUM [Concomitant]
     Indication: HYPOTHYROIDISM
     Dosage: 100 ?G, UNK
  2. SEROQUEL [Concomitant]
  3. COMPAZINE [Concomitant]
     Indication: GASTRIC DISORDER
  4. OMEPRAZOLE [Concomitant]
     Dosage: 20 MG, UNK
  5. DEPAKOTE [Concomitant]
  6. MONONESSA-28 [Concomitant]
  7. BACLOFEN [Concomitant]
     Indication: PAIN
     Dosage: 20 MG, UNK
  8. YASMIN [Suspect]
     Indication: PREMENSTRUAL SYNDROME
     Dosage: UNK
     Dates: start: 20080612, end: 20080101
  9. TOPAMAX [Concomitant]
     Indication: PAIN
     Dosage: 100 MG, UNK

REACTIONS (8)
  - LIVER DISORDER [None]
  - GALLBLADDER INJURY [None]
  - HEPATOMEGALY [None]
  - GASTROINTESTINAL INJURY [None]
  - PANCREATITIS [None]
  - BILIARY DYSKINESIA [None]
  - HEPATIC STEATOSIS [None]
  - APPENDICITIS [None]
